FAERS Safety Report 19412173 (Version 1)
Quarter: 2021Q2

REPORT INFORMATION
  Report Type: Spontaneous
  Country: US (occurrence: US)
  Receive Date: 20210614
  Receipt Date: 20210614
  Transmission Date: 20210717
  Serious: No
  Sender: FDA-Public Use
  Company Number: None

PATIENT

DRUGS (3)
  1. LEVOTHYROXINE SODIUM TABLETS, USP [Suspect]
     Active Substance: LEVOTHYROXINE SODIUM
     Indication: MUSCLE SPASMS
  2. LEVOTHYROXINE SODIUM TABLETS, USP [Suspect]
     Active Substance: LEVOTHYROXINE SODIUM
     Indication: PALPITATIONS
  3. LEVOTHYROXINE SODIUM TABLETS, USP [Suspect]
     Active Substance: LEVOTHYROXINE SODIUM
     Indication: ASTHENIA

REACTIONS (7)
  - Overdose [None]
  - Product complaint [None]
  - Product label issue [None]
  - Hyperthyroidism [None]
  - Hypothyroidism [None]
  - Underdose [None]
  - Incorrect dose administered by product [None]

NARRATIVE: CASE EVENT DATE: 20210219
